FAERS Safety Report 24965968 (Version 4)
Quarter: 2025Q3

REPORT INFORMATION
  Report Type: Spontaneous
  Country: US (occurrence: US)
  Receive Date: 20250213
  Receipt Date: 20250915
  Transmission Date: 20251021
  Serious: No
  Sender: SANOFI AVENTIS
  Company Number: US-SA-2025SA042034

PATIENT
  Age: 50 Year
  Sex: Female

DRUGS (17)
  1. DUPIXENT [Suspect]
     Active Substance: DUPILUMAB
     Indication: Dermatitis atopic
     Route: 058
     Dates: start: 20250211, end: 20250211
  2. DUPIXENT [Suspect]
     Active Substance: DUPILUMAB
     Dosage: 300 MG QOW
     Route: 058
     Dates: start: 202502, end: 202509
  3. ALBUTEROL SULFATE [Concomitant]
     Active Substance: ALBUTEROL SULFATE
  4. ALBUTEROL SULFATE [Concomitant]
     Active Substance: ALBUTEROL SULFATE
  5. CYMBALTA [Concomitant]
     Active Substance: DULOXETINE HYDROCHLORIDE
  6. DICLOFENAC [Concomitant]
     Active Substance: DICLOFENAC
  7. EPINEPHRINE [Concomitant]
     Active Substance: EPINEPHRINE
  8. FLUTICASONE [Concomitant]
     Active Substance: FLUTICASONE
  9. GABAPENTIN [Concomitant]
     Active Substance: GABAPENTIN
  10. IRON [Concomitant]
     Active Substance: IRON
  11. LIPITOR [Concomitant]
     Active Substance: ATORVASTATIN CALCIUM
  12. PEPCID [Concomitant]
     Active Substance: FAMOTIDINE
  13. SUCRALFATE [Concomitant]
     Active Substance: SUCRALFATE
  14. TIZANIDINE [Concomitant]
     Active Substance: TIZANIDINE
  15. TRAMADOL HCL [Concomitant]
     Active Substance: TRAMADOL HYDROCHLORIDE
  16. VENTOLIN HFA [Concomitant]
     Active Substance: ALBUTEROL SULFATE
  17. VITAMIN D [Concomitant]
     Active Substance: VITAMIN D NOS

REACTIONS (1)
  - Rash [Not Recovered/Not Resolved]

NARRATIVE: CASE EVENT DATE: 20250101
